FAERS Safety Report 19442306 (Version 1)
Quarter: 2021Q2

REPORT INFORMATION
  Report Type: Spontaneous
  Country: US (occurrence: US)
  Receive Date: 20210618
  Receipt Date: 20210618
  Transmission Date: 20210717
  Serious: No
  Sender: FDA-Public Use
  Company Number: None

PATIENT
  Age: 52 Year
  Sex: Female

DRUGS (13)
  1. HYDRO/APAP [Concomitant]
     Active Substance: ACETAMINOPHEN\HYDROCODONE
  2. METOCLOPRAMIDE. [Concomitant]
     Active Substance: METOCLOPRAMIDE
  3. MOMETASONE [Concomitant]
     Active Substance: MOMETASONE
  4. ONDANSETRON [Concomitant]
     Active Substance: ONDANSETRON
  5. CAPECITABINE 500MG TAB [Suspect]
     Active Substance: CAPECITABINE
     Indication: BREAST CANCER FEMALE
     Dosage: ?          OTHER FREQUENCY:QAM?QPM;?
     Route: 048
     Dates: start: 20180105, end: 20210615
  6. ALREX [Concomitant]
     Active Substance: LOTEPREDNOL ETABONATE
  7. FAMOTIDINE. [Concomitant]
     Active Substance: FAMOTIDINE
  8. XIIDRA [Concomitant]
     Active Substance: LIFITEGRAST
  9. CAPECITABINE. [Suspect]
     Active Substance: CAPECITABINE
  10. AMOXICILLIN. [Concomitant]
     Active Substance: AMOXICILLIN
  11. NEO/POLY/HC [Concomitant]
     Active Substance: HYDROCORTISONE\NEOMYCIN\POLYMYXIN B SULFATE
  12. CAPECITABINE 500MG TAB [Suspect]
     Active Substance: CAPECITABINE
     Indication: BREAST CANCER FEMALE
     Dosage: ?          OTHER FREQUENCY:QAM?QPM;?
     Route: 048
     Dates: start: 20180105, end: 20210615
  13. CELECOXIB. [Concomitant]
     Active Substance: CELECOXIB

REACTIONS (2)
  - Neoplasm malignant [None]
  - Drug ineffective [None]

NARRATIVE: CASE EVENT DATE: 20210615
